FAERS Safety Report 15669293 (Version 1)
Quarter: 2018Q4

REPORT INFORMATION
  Report Type: Spontaneous
  Country: US (occurrence: US)
  Receive Date: 20181129
  Receipt Date: 20181129
  Transmission Date: 20190205
  Serious: No
  Sender: FDA-Public Use
  Company Number: US-EMD SERONO-9055703

PATIENT
  Age: 56 Year
  Sex: Male

DRUGS (1)
  1. SEROSTIM [Suspect]
     Active Substance: SOMATROPIN
     Indication: FACIAL NERVE DISORDER
     Route: 058
     Dates: start: 20170817

REACTIONS (3)
  - General physical condition abnormal [Unknown]
  - Off label use [Unknown]
  - Mental status changes [Unknown]

NARRATIVE: CASE EVENT DATE: 20170817
